FAERS Safety Report 5696486-5 (Version None)
Quarter: 2008Q2

REPORT INFORMATION
  Report Type: 
  Country: None (occurrence: None)
  Receive Date: 20080408
  Receipt Date: 20080311
  Transmission Date: 20081010
  Serious: No
  Sender: FDA-Public Use
  Company Number: US-BOEHRINGER INGELHEIM GMBH, GERMANY-2007-BP-19864BP

PATIENT
  Age: 62 Year
  Sex: Male

DRUGS (4)
  1. SPIRIVA [Suspect]
     Indication: ASTHMA
     Route: 055
     Dates: start: 20071101
  2. ADVAIR HFA [Concomitant]
     Indication: CHRONIC OBSTRUCTIVE PULMONARY DISEASE
  3. ATROVENT [Concomitant]
  4. ALBUTEROL [Concomitant]

REACTIONS (2)
  - HEADACHE [None]
  - INAPPROPRIATE SCHEDULE OF DRUG ADMINISTRATION [None]
